FAERS Safety Report 4763702-3 (Version None)
Quarter: 2005Q3

REPORT INFORMATION
  Report Type: 
  Country: None (occurrence: None)
  Receive Date: 20050908
  Receipt Date: 20050805
  Transmission Date: 20060218
  Serious: Yes (Hospitalization)
  Sender: FDA-Public Use
  Company Number: ES-GLAXOSMITHKLINE-B0390101A

PATIENT
  Age: 32 Year
  Sex: Male

DRUGS (4)
  1. AMPRENAVIR [Suspect]
     Indication: HIV INFECTION
     Route: 065
  2. DIDANOSINE [Suspect]
     Indication: HIV INFECTION
     Route: 065
  3. STAVUDINE [Suspect]
     Indication: HIV INFECTION
     Route: 065
  4. RITONAVIR [Suspect]
     Indication: HIV INFECTION
     Route: 065

REACTIONS (8)
  - ABDOMINAL PAIN [None]
  - HEPATOMEGALY [None]
  - METABOLIC ACIDOSIS [None]
  - NAUSEA [None]
  - PYREXIA [None]
  - TACHYCARDIA [None]
  - TACHYPNOEA [None]
  - VOMITING [None]
